FAERS Safety Report 8757794 (Version 1)
Quarter: 2012Q4

REPORT INFORMATION
  Report Type: 
  Country: US (occurrence: US)
  Receive Date: 20120828
  Receipt Date: 20120828
  Transmission Date: 20130627
  Serious: No
  Sender: FDA-Public Use
  Company Number: US-009507513-1208USA003217

PATIENT

DRUGS (1)
  1. AFRIN SPRAY [Suspect]
     Indication: NASAL CONGESTION
     Dosage: UNK, Unknown
     Route: 045

REACTIONS (2)
  - Burning sensation [Unknown]
  - Drug ineffective [Unknown]
